FAERS Safety Report 13676625 (Version 1)
Quarter: 2017Q2

REPORT INFORMATION
  Report Type: Spontaneous
  Country: US (occurrence: US)
  Receive Date: 20170622
  Receipt Date: 20170622
  Transmission Date: 20170830
  Serious: No
  Sender: FDA-Public Use
  Company Number: US-PFIZER INC-2016362541

PATIENT
  Age: 77 Year
  Sex: Female
  Weight: 62.6 kg

DRUGS (2)
  1. XALATAN [Suspect]
     Active Substance: LATANOPROST
     Dosage: 1 GTT, 1X/DAY, (IN EACH EYE IN THE EVENING)
     Dates: end: 201704
  2. XALATAN [Suspect]
     Active Substance: LATANOPROST
     Dosage: 1 GTT, 1X/DAY, (IN EACH EYE IN THE EVENING)
     Dates: end: 201704

REACTIONS (6)
  - Allergic reaction to excipient [Unknown]
  - Eye swelling [Recovered/Resolved]
  - Incorrect product storage [Unknown]
  - Eye pruritus [Recovered/Resolved]
  - Erythema of eyelid [Recovered/Resolved]
  - Drug administration error [Unknown]

NARRATIVE: CASE EVENT DATE: 201704
